FAERS Safety Report 16499390 (Version 1)
Quarter: 2019Q3

REPORT INFORMATION
  Report Type: Spontaneous
  Country: ZA (occurrence: ZA)
  Receive Date: 20190701
  Receipt Date: 20190701
  Transmission Date: 20191004
  Serious: Yes (Other)
  Sender: FDA-Public Use
  Company Number: ZA-CIPLA LTD.-2019ZA04630

PATIENT

DRUGS (1)
  1. EFAVIRENZ/EMTRICITABINE/TENOFOVIR [Suspect]
     Active Substance: EFAVIRENZ\EMTRICITABINE\TENOFOVIR DISOPROXIL FUMARATE
     Indication: HIV INFECTION
     Dosage: UNK
     Route: 065

REACTIONS (2)
  - Exposure during pregnancy [Unknown]
  - No adverse event [Unknown]
